FAERS Safety Report 16864400 (Version 1)
Quarter: 2019Q3

REPORT INFORMATION
  Report Type: Spontaneous
  Country: US (occurrence: US)
  Receive Date: 20190928
  Receipt Date: 20190928
  Transmission Date: 20191005
  Serious: Yes (Other)
  Sender: FDA-Public Use
  Company Number: US-ROCHE-2415124

PATIENT
  Age: 8 Year
  Sex: Female

DRUGS (2)
  1. PULMOZYME [Suspect]
     Active Substance: DORNASE ALFA
     Indication: PRODUCT USED FOR UNKNOWN INDICATION
     Dosage: DAILY, 1MG/ML AMP*REFRIG
     Route: 055
     Dates: start: 2018
  2. KALYDECO [Concomitant]
     Active Substance: IVACAFTOR

REACTIONS (1)
  - Aspergillus infection [Unknown]

NARRATIVE: CASE EVENT DATE: 20190819
